FAERS Safety Report 7244279-X (Version None)
Quarter: 2011Q1

REPORT INFORMATION
  Report Type: 
  Country: None (occurrence: None)
  Receive Date: 20110125
  Receipt Date: 20110117
  Transmission Date: 20110831
  Serious: Yes (Death)
  Sender: FDA-Public Use
  Company Number: US-GILEAD-2011-0034977

PATIENT
  Sex: Female

DRUGS (1)
  1. LETAIRIS [Suspect]
     Indication: PRODUCT USED FOR UNKNOWN INDICATION
     Route: 048
     Dates: start: 20090702

REACTIONS (6)
  - HYPERTENSION [None]
  - PULMONARY ARTERIAL HYPERTENSION [None]
  - OBESITY [None]
  - DIABETES MELLITUS [None]
  - ACUTE RESPIRATORY FAILURE [None]
  - SLEEP APNOEA SYNDROME [None]
